FAERS Safety Report 9013818 (Version 1)
Quarter: 2012Q4

REPORT INFORMATION
  Report Type: Spontaneous
  Country: US (occurrence: None)
  Receive Date: 20121231
  Receipt Date: 20121231
  Transmission Date: 20130627
  Serious: Yes (Other)
  Sender: FDA-Public Use
  Company Number: B0855266A

PATIENT

DRUGS (1)
  1. ACYCLOVIR [Suspect]
     Indication: STEM CELL TRANSPLANT

REACTIONS (1)
  - Bone marrow toxicity [None]
